FAERS Safety Report 9975305 (Version 1)
Quarter: 2014Q1

REPORT INFORMATION
  Report Type: Report from Study
  Country: US (occurrence: US)
  Receive Date: 20140306
  Receipt Date: 20140306
  Transmission Date: 20141002
  Serious: No
  Sender: FDA-Public Use
  Company Number: US-ABBVIE-13P-163-1158153-00

PATIENT
  Age: 59 Year
  Sex: Female

DRUGS (9)
  1. HUMIRA [Suspect]
     Indication: COLITIS ULCERATIVE
     Dates: start: 20120626
  2. HYDROXYCHLOROQUINE [Concomitant]
     Indication: SYSTEMIC LUPUS ERYTHEMATOSUS
  3. ATENOLOL [Concomitant]
     Indication: PRODUCT USED FOR UNKNOWN INDICATION
  4. ENALAPRIL [Concomitant]
     Indication: HYPERTENSION
  5. HYDROCHLOROTHIAZIDE [Concomitant]
     Indication: HYPERTENSION
  6. AZATHIOPRINE [Concomitant]
     Indication: COLITIS ULCERATIVE
  7. CALCIUM [Concomitant]
     Indication: MINERAL SUPPLEMENTATION
  8. PRENATAL VITAMINS [Concomitant]
     Indication: VITAMIN SUPPLEMENTATION
  9. UNKNOWN MEDICATION [Concomitant]
     Indication: DEPRESSION

REACTIONS (1)
  - Inappropriate schedule of drug administration [Recovered/Resolved]
